FAERS Safety Report 16740392 (Version 1)
Quarter: 2019Q3

REPORT INFORMATION
  Report Type: Spontaneous
  Country: CA (occurrence: CA)
  Receive Date: 20190826
  Receipt Date: 20190826
  Transmission Date: 20191005
  Serious: Yes (Life-Threatening)
  Sender: FDA-Public Use
  Company Number: CA-PFIZER INC-2019362688

PATIENT
  Age: 70 Year
  Sex: Male
  Weight: 85 kg

DRUGS (4)
  1. ABRAXANE [Suspect]
     Active Substance: PACLITAXEL
     Indication: PANCREATIC CARCINOMA
     Dosage: 194 MG, EVERY 28 DAY(S)
     Route: 041
  2. GEMCITABINE HYDROCHLORIDE. [Suspect]
     Active Substance: GEMCITABINE HYDROCHLORIDE
     Indication: PANCREATIC CARCINOMA
     Dosage: 1552 MG, EVERY 28 DAY(S)
     Route: 041
  3. DURVALUMAB. [Concomitant]
     Active Substance: DURVALUMAB
     Indication: PANCREATIC CARCINOMA
     Dosage: UNK
     Route: 065
  4. TICILIMUMAB [Concomitant]
     Active Substance: TREMELIMUMAB
     Indication: PANCREATIC CARCINOMA
     Dosage: UNK
     Route: 065

REACTIONS (1)
  - Pulmonary oedema [Recovered/Resolved]
